FAERS Safety Report 6419508-2 (Version None)
Quarter: 2009Q4

REPORT INFORMATION
  Report Type: 
  Country: None (occurrence: None)
  Receive Date: 20091029
  Receipt Date: 20091020
  Transmission Date: 20100525
  Serious: Yes (Other)
  Sender: FDA-Public Use
  Company Number: AT-JNJFOC-20091006738

PATIENT
  Age: 22 Year
  Sex: Male

DRUGS (4)
  1. RISPERIDONE [Suspect]
     Dosage: 4-3 MG
     Route: 065
  2. RISPERIDONE [Suspect]
     Indication: SCHIZOPHRENIA
     Route: 065
  3. SERTRALINE HCL [Interacting]
     Route: 065
  4. SERTRALINE HCL [Interacting]
     Indication: DEPRESSION
     Route: 065

REACTIONS (2)
  - DRUG INTERACTION [None]
  - PRIAPISM [None]
